FAERS Safety Report 25397205 (Version 1)
Quarter: 2025Q2

REPORT INFORMATION
  Report Type: Spontaneous
  Country: US (occurrence: US)
  Receive Date: 20250604
  Receipt Date: 20250604
  Transmission Date: 20250717
  Serious: No
  Sender: SPRINGWORKS THERAPEUTIC
  Company Number: US-SPRINGWORKS THERAPEUTICS-SW-002303

PATIENT

DRUGS (1)
  1. GOMEKLI [Suspect]
     Active Substance: MIRDAMETINIB
     Indication: Neurofibromatosis

REACTIONS (15)
  - Pain of skin [Unknown]
  - Gastrointestinal disorder [Not Recovered/Not Resolved]
  - Food intolerance [Not Recovered/Not Resolved]
  - Gastrooesophageal reflux disease [Not Recovered/Not Resolved]
  - Nail infection [Unknown]
  - Photosensitivity reaction [Unknown]
  - Disease progression [Unknown]
  - Skin exfoliation [Unknown]
  - Hair colour changes [Unknown]
  - Dry skin [Unknown]
  - Dermatitis acneiform [Not Recovered/Not Resolved]
  - Rash [Unknown]
  - Alopecia [Unknown]
  - Nausea [Unknown]
  - Fatigue [Unknown]
